FAERS Safety Report 23388179 (Version 1)
Quarter: 2024Q1

REPORT INFORMATION
  Report Type: Spontaneous
  Country: US (occurrence: None)
  Receive Date: 20240110
  Receipt Date: 20240110
  Transmission Date: 20240410
  Serious: Yes (Hospitalization, Disabling, Other)
  Sender: FDA-Public Use
  Company Number: None

PATIENT
  Age: 16 Year
  Sex: Female

DRUGS (1)
  1. SINGULAIR [Suspect]
     Active Substance: MONTELUKAST SODIUM
     Indication: Asthma
     Dosage: OTHER QUANTITY : 1 TABLET(S);?FREQUENCY : AT BEDTIME;?
     Route: 048
     Dates: start: 20190301, end: 20231231

REACTIONS (7)
  - Hallucination, auditory [None]
  - Hallucination, visual [None]
  - Suicide attempt [None]
  - Intentional self-injury [None]
  - Skin laceration [None]
  - Scar [None]
  - Tic [None]

NARRATIVE: CASE EVENT DATE: 20190301
